FAERS Safety Report 8538574-1 (Version None)
Quarter: 2012Q3

REPORT INFORMATION
  Report Type: 
  Country: None (occurrence: None)
  Receive Date: 20120718
  Receipt Date: 20120718
  Transmission Date: 20120928
  Serious: Yes (Disabling)
  Sender: FDA-Public Use
  Company Number: None

PATIENT
  Sex: Female
  Weight: 85.2762 kg

DRUGS (1)
  1. METOCLOPRAMIDE [Suspect]

REACTIONS (3)
  - SPEECH DISORDER [None]
  - TARDIVE DYSKINESIA [None]
  - MASTICATION DISORDER [None]
